FAERS Safety Report 6310061-0 (Version None)
Quarter: 2009Q3

REPORT INFORMATION
  Report Type: 
  Country: None (occurrence: None)
  Receive Date: 20090814
  Receipt Date: 20090804
  Transmission Date: 20100115
  Serious: Yes (Hospitalization, Other)
  Sender: FDA-Public Use
  Company Number: US-ABBOTT-09P-163-0589510-00

PATIENT
  Sex: Female
  Weight: 54.48 kg

DRUGS (15)
  1. HUMIRA [Suspect]
     Indication: CROHN'S DISEASE
     Dates: start: 20070922
  2. AMBIEN [Concomitant]
     Indication: INSOMNIA
  3. VITAMIN B-12 [Concomitant]
     Indication: VITAMIN SUPPLEMENTATION
  4. PAXIL [Concomitant]
     Indication: ANXIETY
  5. PAXIL [Concomitant]
     Indication: DEPRESSION
  6. ACTONEL [Concomitant]
     Indication: OSTEOPENIA
  7. CALCIUM [Concomitant]
     Indication: MINERAL SUPPLEMENTATION
  8. MULTIPLE VITAMINS [Concomitant]
     Indication: VITAMIN SUPPLEMENTATION
  9. VITAMIN E [Concomitant]
     Indication: VITAMIN SUPPLEMENTATION
  10. COLACE [Concomitant]
     Indication: CONSTIPATION PROPHYLAXIS
  11. ZINC [Concomitant]
     Indication: ROUTINE HEALTH MAINTENANCE
  12. ASCORBIC ACID [Concomitant]
     Indication: VITAMIN SUPPLEMENTATION
  13. TYLENOL (CAPLET) [Concomitant]
     Indication: PAIN
  14. ANTIBIOTICS [Concomitant]
     Indication: COLONIC OBSTRUCTION
     Route: 042
     Dates: start: 20090101, end: 20090101
  15. ANTIBIOTICS [Concomitant]
     Route: 042
     Dates: start: 20090601, end: 20090601

REACTIONS (9)
  - BLOOD POTASSIUM DECREASED [None]
  - CONTUSION [None]
  - COUGH [None]
  - INCISION SITE COMPLICATION [None]
  - INTESTINAL OBSTRUCTION [None]
  - LIMB DISCOMFORT [None]
  - PAIN IN EXTREMITY [None]
  - PLEURISY [None]
  - RESPIRATORY TRACT CONGESTION [None]
